FAERS Safety Report 20768907 (Version 1)
Quarter: 2022Q2

REPORT INFORMATION
  Report Type: Spontaneous
  Country: US (occurrence: None)
  Receive Date: 20220428
  Receipt Date: 20220428
  Transmission Date: 20220721
  Serious: No
  Sender: FDA-Public Use
  Company Number: None

PATIENT
  Age: 72 Year
  Sex: Male
  Weight: 72.21 kg

DRUGS (3)
  1. AKYNZEO (NETUPITANT\PALONOSETRON) [Suspect]
     Active Substance: NETUPITANT\PALONOSETRON
     Indication: Prostate cancer
     Dates: end: 20220428
  2. ASPRIIN 81 [Concomitant]
  3. ATENOLOL [Concomitant]

REACTIONS (1)
  - Disease progression [None]
